FAERS Safety Report 24840904 (Version 2)
Quarter: 2025Q1

REPORT INFORMATION
  Report Type: Spontaneous
  Country: CN (occurrence: CN)
  Receive Date: 20250114
  Receipt Date: 20250326
  Transmission Date: 20250409
  Serious: Yes (Other)
  Sender: NOVARTIS
  Company Number: CN-002147023-NVSC2025CN004905

PATIENT
  Sex: Female

DRUGS (1)
  1. LETROZOLE [Suspect]
     Active Substance: LETROZOLE
     Indication: Ovulation induction
     Dosage: FROM THE 3RD TO THE 5TH DAY OF MENSTRUATION, TOOK 2.5 TO 5.0 MG, EVERY DAY FOR 5 CONSECUTIVE DAYS
     Route: 048

REACTIONS (3)
  - Ectopic pregnancy [Unknown]
  - Maternal exposure before pregnancy [Unknown]
  - Product use in unapproved indication [Unknown]
